FAERS Safety Report 8183349-9 (Version None)
Quarter: 2012Q1

REPORT INFORMATION
  Report Type: 
  Country: None (occurrence: None)
  Receive Date: 20120305
  Receipt Date: 20120221
  Transmission Date: 20120608
  Serious: Yes (Other)
  Sender: FDA-Public Use
  Company Number: CA-ELI_LILLY_AND_COMPANY-CA201202006350

PATIENT
  Sex: Female

DRUGS (7)
  1. HUMALOG MIX 75/25 [Suspect]
     Dosage: 24 U, UNKNOWN
     Dates: start: 20100101
  2. HUMALOG MIX 75/25 [Suspect]
     Dosage: 14 U, UNKNOWN
     Dates: end: 20120220
  3. HUMALOG MIX 75/25 [Suspect]
     Dosage: 14 U, EACH MORNING
     Dates: start: 20120220
  4. HUMALOG MIX 75/25 [Suspect]
     Dosage: 12 TO 14 U, AT NIGHT
     Dates: start: 20120220
  5. LYRICA [Concomitant]
     Dosage: UNK
  6. HUMALOG MIX 75/25 [Suspect]
     Dosage: 16 U, UNKNOWN
  7. HUMALOG MIX 75/25 [Suspect]
     Indication: DIABETES MELLITUS
     Dosage: 18 U, UNKNOWN
     Dates: start: 20090601

REACTIONS (4)
  - HYPOGLYCAEMIC UNCONSCIOUSNESS [None]
  - INJECTION SITE PAIN [None]
  - EYE DISORDER [None]
  - MEMORY IMPAIRMENT [None]
